FAERS Safety Report 25828995 (Version 1)
Quarter: 2025Q3

REPORT INFORMATION
  Report Type: Spontaneous
  Country: JP (occurrence: JP)
  Receive Date: 20250922
  Receipt Date: 20250922
  Transmission Date: 20251020
  Serious: Yes (Other)
  Sender: SANOFI AVENTIS
  Company Number: JP-SA-2025SA278132

PATIENT
  Age: 7 Decade
  Sex: Male

DRUGS (2)
  1. ARAVA [Suspect]
     Active Substance: LEFLUNOMIDE
     Indication: Rheumatoid arthritis
     Route: 048
  2. SULFASALAZINE [Suspect]
     Active Substance: SULFASALAZINE
     Indication: Rheumatoid arthritis
     Route: 048

REACTIONS (5)
  - Diffuse large B-cell lymphoma [Unknown]
  - Gingival swelling [Unknown]
  - Loose tooth [Unknown]
  - Immunodeficiency [Unknown]
  - Accommodation disorder [Unknown]
